FAERS Safety Report 4400482-5 (Version None)
Quarter: 2004Q3

REPORT INFORMATION
  Report Type: 
  Country: None (occurrence: None)
  Receive Date: 20040719
  Receipt Date: 20040712
  Transmission Date: 20050211
  Serious: Yes (Death)
  Sender: FDA-Public Use
  Company Number: 200412304JP

PATIENT
  Age: 94 Year
  Sex: Male

DRUGS (1)
  1. TAXOTERE [Suspect]
     Indication: ANGIOSARCOMA
     Route: 041

REACTIONS (1)
  - INTERSTITIAL LUNG DISEASE [None]
